FAERS Safety Report 5246712-1 (Version None)
Quarter: 2007Q1

REPORT INFORMATION
  Report Type: 
  Country: None (occurrence: None)
  Receive Date: 20070216
  Receipt Date: 20070205
  Transmission Date: 20070707
  Serious: Yes (Hospitalization)
  Sender: FDA-Public Use
  Company Number: 234619

PATIENT
  Age: 63 Year
  Sex: Male

DRUGS (5)
  1. RAPTIVA [Suspect]
     Indication: PSORIASIS
     Dosage: SEE IMAGE
     Route: 058
     Dates: start: 20061130
  2. FLAGYL [Concomitant]
  3. PREMARIL (ESTROGENS, CONJUGATED) [Concomitant]
  4. FLOMAX [Concomitant]
  5. HYDROCHLOROTHIAZIDE [Concomitant]

REACTIONS (3)
  - BASAL CELL CARCINOMA [None]
  - CYST REMOVAL [None]
  - DIVERTICULITIS [None]
